FAERS Safety Report 9671391 (Version 1)
Quarter: 2013Q4

REPORT INFORMATION
  Report Type: Spontaneous
  Country: US (occurrence: None)
  Receive Date: 20131105
  Receipt Date: 20131105
  Transmission Date: 20140711
  Serious: Yes (Life-Threatening, Hospitalization)
  Sender: FDA-Public Use
  Company Number: None

PATIENT
  Age: 46 Year
  Sex: Male
  Weight: 90.72 kg

DRUGS (1)
  1. ALBUTEROL SULFATE INHALATION SOL .083% NEPHRON PHARMACEUTICALS CORP [Suspect]
     Indication: DYSPNOEA
     Dosage: USE VIALS AS NEEDED AS NEEDED INHALATION
     Route: 055
     Dates: start: 20131006, end: 20131102

REACTIONS (2)
  - Unevaluable event [None]
  - Poor quality drug administered [None]
